FAERS Safety Report 21368810 (Version 2)
Quarter: 2023Q1

REPORT INFORMATION
  Report Type: Other
  Country: US (occurrence: None)
  Receive Date: 20220923
  Receipt Date: 20230302
  Transmission Date: 20230417
  Serious: Yes (Hospitalization, Other)
  Sender: FDA-Public Use
  Company Number: US-ROCHE-2854250

PATIENT
  Age: 75 Year
  Sex: Female

DRUGS (25)
  1. PULMOZYME [Suspect]
     Active Substance: DORNASE ALFA
     Indication: Bronchiectasis
     Route: 055
     Dates: start: 201012
  2. PULMOZYME [Suspect]
     Active Substance: DORNASE ALFA
     Indication: Lung disorder
     Dosage: 2.5 ML QUANTITY: 1 MONTH
     Route: 055
  3. PULMOZYME [Suspect]
     Active Substance: DORNASE ALFA
     Indication: Scoliosis
     Dosage: NEBULIZER
     Route: 055
     Dates: start: 202105
  4. PULMOZYME [Suspect]
     Active Substance: DORNASE ALFA
     Route: 055
  5. PULMOZYME [Suspect]
     Active Substance: DORNASE ALFA
     Route: 055
  6. SODIUM CHLORIDE [Suspect]
     Active Substance: SODIUM CHLORIDE
     Indication: Lung disorder
     Route: 055
  7. PERCOCET [Concomitant]
     Active Substance: ACETAMINOPHEN\OXYCODONE HYDROCHLORIDE
  8. XANAX [Concomitant]
     Active Substance: ALPRAZOLAM
  9. TRELEGY ELLIPTA [Concomitant]
     Active Substance: FLUTICASONE FUROATE\UMECLIDINIUM BROMIDE\VILANTEROL TRIFENATATE
  10. ROFLUMILAST [Concomitant]
     Active Substance: ROFLUMILAST
  11. TIZANIDINE [Concomitant]
     Active Substance: TIZANIDINE
  12. ZYRTEC [Concomitant]
     Active Substance: CETIRIZINE HYDROCHLORIDE
  13. NITROGLYCERIN [Concomitant]
     Active Substance: NITROGLYCERIN
  14. MAGNESIUM [Concomitant]
     Active Substance: MAGNESIUM
  15. TRIAMCINOLONE [Concomitant]
     Active Substance: TRIAMCINOLONE
  16. OMEPRAZOLE [Concomitant]
     Active Substance: OMEPRAZOLE
  17. ALBUTEROL [Concomitant]
     Active Substance: ALBUTEROL
     Indication: Lung disorder
     Route: 055
  18. CAYSTON [Concomitant]
     Active Substance: AZTREONAM
     Dosage: FOR 28 DAYS AND OFF 28 DAYS.TOWARDS THE END OF THE MONTH WITH THE LAST 3 OR 4 DOSES
  19. VITAMIN B12 [Concomitant]
     Active Substance: CYANOCOBALAMIN
  20. FLONASE [Concomitant]
     Active Substance: FLUTICASONE PROPIONATE
  21. PLAVIX [Concomitant]
     Active Substance: CLOPIDOGREL BISULFATE
  22. TUSSIONEX PENNKINETIC [Concomitant]
     Active Substance: CHLORPHENIRAMINE\HYDROCODONE
  23. ALENDRONATE [Concomitant]
     Active Substance: ALENDRONATE SODIUM
  24. SUCRALFATE [Concomitant]
     Active Substance: SUCRALFATE
  25. POTASSIUM [Concomitant]
     Active Substance: POTASSIUM

REACTIONS (10)
  - Pneumonia [Recovering/Resolving]
  - Throat irritation [Not Recovered/Not Resolved]
  - Speech disorder [Recovering/Resolving]
  - Aphonia [Not Recovered/Not Resolved]
  - Illness [Unknown]
  - Off label use [Unknown]
  - Pneumonia [Unknown]
  - Hypoacusis [Unknown]
  - Pneumonia bacterial [Unknown]
  - Illness [Unknown]

NARRATIVE: CASE EVENT DATE: 20210520
